FAERS Safety Report 12512597 (Version 1)
Quarter: 2016Q2

REPORT INFORMATION
  Report Type: Spontaneous
  Country: US (occurrence: None)
  Receive Date: 20160629
  Receipt Date: 20160629
  Transmission Date: 20160815
  Serious: No
  Sender: FDA-Public Use
  Company Number: None

PATIENT
  Age: 55 Year
  Sex: Female
  Weight: 63.05 kg

DRUGS (15)
  1. ACIDOL [Concomitant]
  2. MILK THISTLE [Concomitant]
     Active Substance: MILK THISTLE
  3. SELENIUM [Concomitant]
     Active Substance: SELENIUM
  4. VITAMIN B12 [Concomitant]
     Active Substance: CYANOCOBALAMIN
  5. CHLORELA [Concomitant]
  6. INMUNUGEN COLSTRUM [Concomitant]
  7. VITAMIN C [Concomitant]
     Active Substance: ASCORBIC ACID
  8. VITAMIN D [Concomitant]
     Active Substance: CHOLECALCIFEROL
  9. VALERIAN [Concomitant]
     Active Substance: VALERIAN
  10. DEXAMETHASONE IV [Suspect]
     Active Substance: DEXAMETHASONE
     Indication: INFLAMMATION
     Route: 030
     Dates: start: 20160529, end: 20160602
  11. POTASSIUM [Concomitant]
     Active Substance: POTASSIUM
  12. LUGOL [Concomitant]
     Active Substance: IODINE\POTASSIUM IODIDE
  13. PANCREATIN [Concomitant]
     Active Substance: PANCRELIPASE
  14. COQ10 [Concomitant]
     Active Substance: UBIDECARENONE
  15. INFLAZYME FORTE [Concomitant]

REACTIONS (20)
  - Mucosal dryness [None]
  - Inflammation [None]
  - Insomnia [None]
  - Swelling face [None]
  - Cough [None]
  - Hypoaesthesia [None]
  - Thirst [None]
  - Bite [None]
  - Pain in jaw [None]
  - Restless legs syndrome [None]
  - Peripheral swelling [None]
  - Cardiac flutter [None]
  - Arthritis [None]
  - Burning sensation [None]
  - Throat irritation [None]
  - Lip injury [None]
  - Cardiac discomfort [None]
  - Paraesthesia [None]
  - Night sweats [None]
  - Facial pain [None]

NARRATIVE: CASE EVENT DATE: 20160529
